FAERS Safety Report 4326919-8 (Version None)
Quarter: 2004Q1

REPORT INFORMATION
  Report Type: 
  Country: None (occurrence: None)
  Receive Date: 20040330
  Receipt Date: 20031016
  Transmission Date: 20041129
  Serious: Yes (Hospitalization)
  Sender: FDA-Public Use
  Company Number: FR-ROCHE-349454

PATIENT
  Age: 70 Year
  Sex: Female
  Weight: 82 kg

DRUGS (9)
  1. VALIUM [Suspect]
     Indication: DRUG USE FOR UNKNOWN INDICATION
     Route: 048
  2. LAROXYL [Suspect]
     Indication: DRUG USE FOR UNKNOWN INDICATION
     Route: 048
  3. MONO-TILDIEM LP [Suspect]
     Indication: DRUG USE FOR UNKNOWN INDICATION
     Route: 048
  4. TEGRETOL [Suspect]
     Indication: EPILEPSY
     Route: 048
  5. CIBACENE [Suspect]
     Indication: DRUG USE FOR UNKNOWN INDICATION
     Route: 048
  6. IMOVANE [Suspect]
     Indication: DRUG USE FOR UNKNOWN INDICATION
     Route: 048
     Dates: start: 20030320
  7. GLUCOR [Concomitant]
     Route: 065
  8. DIAMICRON [Concomitant]
     Dosage: 2 TABLETS TAKEN IN THE MORNING AND 2 TABLETS TAKEN IN THE EVENING.
  9. LARGACTIL [Concomitant]
     Dates: start: 20030422, end: 20030527

REACTIONS (4)
  - AKATHISIA [None]
  - DYSKINESIA [None]
  - EXCITABILITY [None]
  - PERSONALITY CHANGE [None]
